FAERS Safety Report 4365784-X (Version None)
Quarter: 2004Q2

REPORT INFORMATION
  Report Type: 
  Country: None (occurrence: None)
  Receive Date: 20040521
  Receipt Date: 20040428
  Transmission Date: 20050107
  Serious: Yes (Hospitalization)
  Sender: FDA-Public Use
  Company Number: 2004210862JP

PATIENT
  Age: 66 Year
  Sex: Male
  Weight: 58 kg

DRUGS (3)
  1. CAMPTOSAR [Suspect]
     Indication: SMALL CELL LUNG CANCER STAGE UNSPECIFIED
     Dosage: 100 MG, CYCLIC, IV DRIP
     Route: 041
     Dates: start: 20040330, end: 20040330
  2. CAMPTOSAR [Suspect]
     Indication: SMALL CELL LUNG CANCER STAGE UNSPECIFIED
     Dosage: 100 MG, CYCLIC, IV DRIP
     Route: 041
     Dates: start: 20040406, end: 20040406
  3. PARAPLATIN [Concomitant]

REACTIONS (5)
  - BODY TEMPERATURE INCREASED [None]
  - ECZEMA [None]
  - ERYTHEMA [None]
  - RASH [None]
  - URTICARIA [None]
